FAERS Safety Report 4777720-2 (Version None)
Quarter: 2005Q3

REPORT INFORMATION
  Report Type: 
  Country: None (occurrence: None)
  Receive Date: 20050921
  Receipt Date: 20050907
  Transmission Date: 20060218
  Serious: Yes (Other)
  Sender: FDA-Public Use
  Company Number: 2005-130623-NL

PATIENT
  Age: 39 Year
  Sex: Female

DRUGS (3)
  1. GANIRELIX [Suspect]
     Indication: IN VITRO FERTILISATION
     Dosage: 25 UG QD, IN TOTAL USED 4 OR 5 DAILY DOSES
     Dates: start: 20050701, end: 20050716
  2. GONAL-F [Concomitant]
  3. REPRONEX [Concomitant]

REACTIONS (1)
  - ANAPHYLACTOID REACTION [None]
